FAERS Safety Report 17010221 (Version 1)
Quarter: 2019Q4

REPORT INFORMATION
  Report Type: Spontaneous
  Country: AU (occurrence: AU)
  Receive Date: 20191108
  Receipt Date: 20191108
  Transmission Date: 20200122
  Serious: Yes (Death, Other)
  Sender: FDA-Public Use
  Company Number: AU-AMGEN-AUSSP2019182649

PATIENT

DRUGS (1)
  1. DARBEPOETIN ALFA [Suspect]
     Active Substance: DARBEPOETIN ALFA
     Indication: CHRONIC KIDNEY DISEASE
     Dosage: UNK, QW/Q2W
     Route: 058

REACTIONS (16)
  - Hyperkalaemia [Unknown]
  - Pneumonia [Unknown]
  - Haemorrhage [Unknown]
  - Nasopharyngitis [Unknown]
  - Lymphocytic leukaemia [Unknown]
  - Death [Fatal]
  - Upper respiratory tract infection [Unknown]
  - Renal cancer metastatic [Unknown]
  - Constipation [Unknown]
  - Hypotension [Unknown]
  - Urinary tract infection [Unknown]
  - Anaemia of malignant disease [Unknown]
  - Intestinal perforation [Unknown]
  - Hypertension [Unknown]
  - Cardiac failure acute [Unknown]
  - Diarrhoea [Unknown]
